FAERS Safety Report 5823334-2 (Version None)
Quarter: 2008Q3

REPORT INFORMATION
  Report Type: 
  Country: None (occurrence: None)
  Receive Date: 20080725
  Receipt Date: 20070607
  Transmission Date: 20090109
  Serious: No
  Sender: FDA-Public Use
  Company Number: US-AMGEN-KDL228425

PATIENT
  Sex: Male
  Weight: 98.1 kg

DRUGS (20)
  1. PROCRIT [Suspect]
     Indication: RENAL FAILURE CHRONIC
     Dates: start: 20060101
  2. ASPIRIN [Concomitant]
  3. COZAAR [Concomitant]
  4. CLONIDINE [Concomitant]
  5. MINOXIDIL [Concomitant]
  6. HYDRALAZINE HCL [Concomitant]
  7. LABETALOL HCL [Concomitant]
  8. BACLOFEN [Concomitant]
  9. LASIX [Concomitant]
  10. NEURONTIN [Concomitant]
  11. ALLOPURINOL [Concomitant]
  12. PLAVIX [Concomitant]
  13. CALCITRIOL [Concomitant]
  14. LIPITOR [Concomitant]
  15. COLACE [Concomitant]
  16. FERROUS SULFATE TAB [Concomitant]
  17. VICODIN [Concomitant]
  18. BENADRYL [Concomitant]
  19. NITROGLYCERIN [Concomitant]
     Route: 060
  20. LACTULOSE [Concomitant]
     Route: 048

REACTIONS (1)
  - VITAMIN B12 DECREASED [None]
